FAERS Safety Report 24669026 (Version 1)
Quarter: 2024Q4

REPORT INFORMATION
  Report Type: Spontaneous
  Country: US (occurrence: None)
  Receive Date: 20241127
  Receipt Date: 20241127
  Transmission Date: 20250114
  Serious: Yes (Other)
  Sender: UNICHEM
  Company Number: US-Unichem Pharmaceuticals (USA) Inc-UCM202411-001556

PATIENT
  Age: 75 Year
  Sex: Female

DRUGS (1)
  1. BACLOFEN [Suspect]
     Active Substance: BACLOFEN
     Indication: Product used for unknown indication
     Route: 065

REACTIONS (4)
  - Neurotoxicity [Recovering/Resolving]
  - Blood creatinine increased [Unknown]
  - Protein urine present [Unknown]
  - Blood urea increased [Unknown]
